FAERS Safety Report 14731458 (Version 2)
Quarter: 2018Q3

REPORT INFORMATION
  Report Type: Spontaneous
  Country: AR (occurrence: AR)
  Receive Date: 20180407
  Receipt Date: 20180712
  Transmission Date: 20181010
  Serious: Yes (Hospitalization, Other)
  Sender: FDA-Public Use
  Company Number: AR-AMGEN-ARGSP2018045793

PATIENT
  Age: 84 Year
  Sex: Female

DRUGS (2)
  1. ENBREL [Suspect]
     Active Substance: ETANERCEPT
     Indication: PSORIATIC ARTHROPATHY
     Dosage: UNK
     Route: 065
     Dates: start: 20080311, end: 201712
  2. ENBREL [Suspect]
     Active Substance: ETANERCEPT
     Dosage: UNK
     Route: 065
     Dates: end: 201803

REACTIONS (13)
  - Urinary tract disorder [Unknown]
  - Urinary incontinence [Unknown]
  - Seizure [Unknown]
  - Blood sodium decreased [Unknown]
  - Anal incontinence [Unknown]
  - Gait disturbance [Unknown]
  - Hypertension [Unknown]
  - Urinary tract infection [Not Recovered/Not Resolved]
  - Mobility decreased [Unknown]
  - Dyschezia [Unknown]
  - Neuronal neuropathy [Unknown]
  - Loss of consciousness [Unknown]
  - Road traffic accident [Unknown]

NARRATIVE: CASE EVENT DATE: 201803
